FAERS Safety Report 23711431 (Version 1)
Quarter: 2024Q2

REPORT INFORMATION
  Report Type: Spontaneous
  Country: US (occurrence: None)
  Receive Date: 20240404
  Receipt Date: 20240404
  Transmission Date: 20240716
  Serious: Yes (Hospitalization)
  Sender: FDA-Public Use
  Company Number: None

PATIENT
  Age: 76 Year
  Sex: Male

DRUGS (11)
  1. CAPECITABINE [Suspect]
     Active Substance: CAPECITABINE
     Dosage: FREQUENCY : DAILY;?
     Route: 048
  2. ALPRAZOLAM [Concomitant]
     Active Substance: ALPRAZOLAM
  3. ATORVASTATIN [Concomitant]
  4. CYCLOBENZAPRINE [Concomitant]
     Active Substance: CYCLOBENZAPRINE
  5. DEXAMETHASONE [Concomitant]
  6. DULOXETINE [Concomitant]
  7. FEXOFENADINE [Concomitant]
  8. GABAPENTIN [Concomitant]
  9. MUCUS [Concomitant]
     Active Substance: GUAIFENESIN
  10. NORCO [Concomitant]
     Active Substance: ACETAMINOPHEN\HYDROCODONE BITARTRATE
  11. PANTOPRAZOLE [Concomitant]

REACTIONS (2)
  - Influenza [None]
  - Pneumonia [None]

NARRATIVE: CASE EVENT DATE: 20240305
